FAERS Safety Report 10031762 (Version 1)
Quarter: 2014Q1

REPORT INFORMATION
  Report Type: Spontaneous
  Country: GB (occurrence: GB)
  Receive Date: 20140324
  Receipt Date: 20140324
  Transmission Date: 20141002
  Serious: Yes (Hospitalization)
  Sender: FDA-Public Use
  Company Number: GB-RANBAXY-2014RR-79375

PATIENT
  Sex: 0

DRUGS (19)
  1. VENLAFAXINE [Suspect]
     Indication: DEPRESSION
     Dosage: EVERY MORNING, 75 MG, DAILY
     Route: 048
     Dates: start: 20131017, end: 20140105
  2. AZATHIOPRINE [Suspect]
     Indication: PULMONARY FIBROSIS
     Dosage: 100 MG, DAILY
     Route: 048
     Dates: end: 20140107
  3. CLARITHROMYCIN [Suspect]
     Indication: PRODUCT USED FOR UNKNOWN INDICATION
     Dosage: 500 MG, DAILY
     Route: 048
     Dates: start: 20131230, end: 20140106
  4. DOXYCYCLINE [Suspect]
     Indication: PRODUCT USED FOR UNKNOWN INDICATION
     Dosage: 200MG STAT THEN 100MG EVERY DAY FOR 6 DAYS
     Route: 048
     Dates: start: 20131127, end: 20131203
  5. ALENDRONIC ACID [Concomitant]
     Indication: PRODUCT USED FOR UNKNOWN INDICATION
     Dosage: 70 MG, 1/WEEK
     Route: 058
  6. LANSOPRAZOLE [Concomitant]
     Indication: PRODUCT USED FOR UNKNOWN INDICATION
     Dosage: 30 MG, DAILY
     Route: 048
  7. MIRTAZAPINE [Concomitant]
     Indication: DEPRESSION
     Dosage: 45 MG, DAILY
     Route: 048
  8. OXYCODONE, MODIFIED RELEASE [Concomitant]
     Indication: PRODUCT USED FOR UNKNOWN INDICATION
     Dosage: 100 MG, BID
     Route: 048
     Dates: start: 20140106
  9. CICLOSPORIN [Concomitant]
     Indication: PULMONARY FIBROSIS
     Dosage: 100 MG, BID
     Route: 048
     Dates: start: 20131017
  10. CO-CODAMOL [Concomitant]
     Indication: PRODUCT USED FOR UNKNOWN INDICATION
     Dosage: 30MG/500, TAKE 2 FOUR TIMES DAILY WHEN REQUIRED
     Route: 048
  11. FELODIPINE [Concomitant]
     Indication: PRODUCT USED FOR UNKNOWN INDICATION
     Dosage: 5 MG, DAILY
     Route: 048
  12. FUROSEMIDE [Concomitant]
     Indication: PRODUCT USED FOR UNKNOWN INDICATION
     Dosage: 60 MG, DAILY
     Route: 048
  13. LORAZEPAM [Concomitant]
     Indication: PRODUCT USED FOR UNKNOWN INDICATION
     Dosage: 1 MG, TWICE DAILY WHEN REQUIRED
     Route: 048
  14. ADCAL-D3 [Concomitant]
     Indication: PRODUCT USED FOR UNKNOWN INDICATION
     Dosage: UNK
     Route: 065
  15. PREDNISOLONE [Concomitant]
     Indication: PRODUCT USED FOR UNKNOWN INDICATION
     Dosage: 5 MG, REDUCING COURSE
     Route: 065
     Dates: start: 20131017
  16. SALBUTAMOL [Concomitant]
     Indication: PRODUCT USED FOR UNKNOWN INDICATION
     Dosage: UNK
     Route: 065
  17. CYCLIZINE [Concomitant]
     Indication: PRODUCT USED FOR UNKNOWN INDICATION
     Dosage: 50 MG, TID
     Route: 065
     Dates: start: 201310
  18. TRIOTROPIUM [Concomitant]
     Indication: PRODUCT USED FOR UNKNOWN INDICATION
     Dosage: UNK
     Route: 065
  19. PROCHLORPERAZINE [Concomitant]
     Indication: PRODUCT USED FOR UNKNOWN INDICATION
     Dosage: 5 MG, TID
     Route: 065
     Dates: start: 20131016

REACTIONS (1)
  - Liver function test abnormal [Recovering/Resolving]
